FAERS Safety Report 7809036-1 (Version None)
Quarter: 2011Q4

REPORT INFORMATION
  Report Type: 
  Country: None (occurrence: None)
  Receive Date: 20111012
  Receipt Date: 20111012
  Transmission Date: 20120403
  Serious: Yes (Hospitalization, Other)
  Sender: FDA-Public Use
  Company Number: None

PATIENT
  Age: 14 Year
  Sex: Male
  Weight: 104.32 kg

DRUGS (1)
  1. SINGULAIR [Suspect]
     Indication: ASTHMA
     Dosage: ONCE DAILY
     Dates: start: 20060201, end: 20110812

REACTIONS (5)
  - SCHOOL REFUSAL [None]
  - NEPHROLITHIASIS [None]
  - ANXIETY [None]
  - DEPRESSION [None]
  - INSOMNIA [None]
